FAERS Safety Report 6226035-4 (Version None)
Quarter: 2009Q2

REPORT INFORMATION
  Report Type: 
  Country: None (occurrence: None)
  Receive Date: 20090612
  Receipt Date: 20090507
  Transmission Date: 20091009
  Serious: No
  Sender: FDA-Public Use
  Company Number: US-ABBOTT-09P-163-0572013-00

PATIENT
  Sex: Female
  Weight: 74.91 kg

DRUGS (2)
  1. HUMIRA [Suspect]
     Indication: PSORIATIC ARTHROPATHY
     Dates: start: 20090305
  2. HUMIRA [Suspect]
     Indication: PSORIASIS

REACTIONS (3)
  - HEADACHE [None]
  - NAUSEA [None]
  - RETCHING [None]
